FAERS Safety Report 17428822 (Version 1)
Quarter: 2020Q1

REPORT INFORMATION
  Report Type: Spontaneous
  Country: None (occurrence: HT)
  Receive Date: 20200217
  Receipt Date: 20200217
  Transmission Date: 20200409
  Serious: No
  Sender: FDA-Public Use
  Company Number: HT-AKRON, INC.-2080538

PATIENT
  Age: 11 Year

DRUGS (1)
  1. VANCOMYCIN [Suspect]
     Active Substance: VANCOMYCIN

REACTIONS (1)
  - Linear IgA disease [None]
